FAERS Safety Report 5896677-4 (Version None)
Quarter: 2008Q3

REPORT INFORMATION
  Report Type: 
  Country: None (occurrence: None)
  Receive Date: 20080924
  Receipt Date: 20080909
  Transmission Date: 20090109
  Serious: Yes (Other)
  Sender: FDA-Public Use
  Company Number: IE-GENENTECH-266694

PATIENT
  Sex: Female

DRUGS (10)
  1. XOLAIR [Suspect]
     Indication: DRUG USE FOR UNKNOWN INDICATION
     Dosage: 300 MG, 1/MONTH
     Route: 058
     Dates: start: 20080717
  2. SYMBICORT [Concomitant]
     Indication: ASTHMA
  3. VENTOLIN [Concomitant]
     Indication: ASTHMA
     Dosage: UNK
  4. SPIRIVA [Concomitant]
     Indication: DRUG USE FOR UNKNOWN INDICATION
  5. PREDNISOLONE [Concomitant]
     Indication: ASTHMA
     Dosage: 20 MG, QD
  6. PHYLLOCONTIN [Concomitant]
     Indication: ASTHMA
     Dosage: 225 MG, QD
  7. TERBUTALINE SULFATE [Concomitant]
     Indication: ASTHMA
     Dosage: 1.5 MG, Q12H
     Route: 058
  8. CALCICHEW [Concomitant]
     Indication: PROPHYLAXIS
  9. FOSAMAX [Concomitant]
     Indication: OSTEOPOROSIS
     Dosage: 70 MG, 1/WEEK
  10. EPIPEN [Concomitant]
     Indication: DRUG USE FOR UNKNOWN INDICATION

REACTIONS (1)
  - PARAESTHESIA ORAL [None]
